FAERS Safety Report 24749788 (Version 2)
Quarter: 2024Q4

REPORT INFORMATION
  Report Type: Spontaneous
  Country: US (occurrence: US)
  Receive Date: 20241218
  Receipt Date: 20241224
  Transmission Date: 20250115
  Serious: Yes (Hospitalization)
  Sender: PFIZER
  Company Number: US-PFIZER INC-202400325207

PATIENT
  Age: 82 Year
  Sex: Male
  Weight: 80.74 kg

DRUGS (1)
  1. VYNDAMAX [Suspect]
     Active Substance: TAFAMIDIS
     Indication: Cardiac disorder
     Dosage: TAKES IT ONE A DAY BY MOUTH
     Route: 048

REACTIONS (6)
  - Hand deformity [Unknown]
  - Peripheral swelling [Unknown]
  - Abdominal distension [Unknown]
  - Neck surgery [Unknown]
  - Fluid retention [Unknown]
  - Gait disturbance [Unknown]

NARRATIVE: CASE EVENT DATE: 20240101
